FAERS Safety Report 14450279 (Version 1)
Quarter: 2018Q1

REPORT INFORMATION
  Report Type: Spontaneous
  Country: JP (occurrence: JP)
  Receive Date: 20180129
  Receipt Date: 20180129
  Transmission Date: 20180509
  Serious: Yes (Death, Life-Threatening, Other)
  Sender: FDA-Public Use
  Company Number: JP-ACCORD-062891

PATIENT
  Age: 27 Year
  Sex: Female

DRUGS (4)
  1. OXALIPLATIN. [Suspect]
     Active Substance: OXALIPLATIN
     Indication: COLON CANCER
  2. FOLINIC ACID [Suspect]
     Active Substance: LEUCOVORIN
     Indication: COLON CANCER
  3. FLUOROURACIL. [Suspect]
     Active Substance: FLUOROURACIL
     Indication: COLON CANCER
     Dosage: 400 MG/M2 IV + 2400 MG/M2 DIV
     Route: 042
  4. BEVACIZUMAB. [Concomitant]
     Active Substance: BEVACIZUMAB
     Indication: COLON CANCER

REACTIONS (5)
  - Inferior vena cava stenosis [Unknown]
  - Thrombocytopenia [Recovering/Resolving]
  - Haemorrhage [Recovered/Resolved]
  - Venoocclusive liver disease [Fatal]
  - Hepatic vein stenosis [Unknown]
